FAERS Safety Report 9752218 (Version 3)
Quarter: 2014Q1

REPORT INFORMATION
  Report Type: Spontaneous
  Country: CN (occurrence: None)
  Receive Date: 20131211
  Receipt Date: 20140218
  Transmission Date: 20141002
  Serious: Yes (Other)
  Sender: FDA-Public Use
  Company Number: 7252741

PATIENT
  Age: 74 Year
  Sex: Female

DRUGS (1)
  1. EUTHYROX [Suspect]
     Indication: THYROID CANCER
     Dosage: 50 MCG (50 MCG, 1 IN 1 D), ORAL
     Route: 048
     Dates: start: 200705, end: 200709

REACTIONS (7)
  - Thyroid cancer [None]
  - Dizziness [None]
  - Eye swelling [None]
  - Headache [None]
  - Arrhythmia [None]
  - Headache [None]
  - Insomnia [None]
